FAERS Safety Report 7981219-X (Version None)
Quarter: 2011Q4

REPORT INFORMATION
  Report Type: 
  Country: None (occurrence: None)
  Receive Date: 20111212
  Receipt Date: 20111125
  Transmission Date: 20120403
  Serious: Yes (Other)
  Sender: FDA-Public Use
  Company Number: 1000026077

PATIENT
  Age: 27 Year
  Sex: Female

DRUGS (3)
  1. CITALOPRAM HYDROBROMIDE [Suspect]
     Indication: DEPRESSION
     Dosage: 30 MG (30 MG, 1 IN 1 D), ORAL
     Route: 048
     Dates: start: 20020429
  2. FOLIMET (FOLIC ACID) [Concomitant]
  3. SELEXID (PIVMECILLIUNAM) [Concomitant]

REACTIONS (4)
  - PREGNANCY [None]
  - MATERNAL EXPOSURE DURING PREGNANCY [None]
  - ABDOMINAL PAIN UPPER [None]
  - PREMATURE DELIVERY [None]
